FAERS Safety Report 23707477 (Version 1)
Quarter: 2024Q2

REPORT INFORMATION
  Report Type: Spontaneous
  Country: FR (occurrence: None)
  Receive Date: 20240404
  Receipt Date: 20240404
  Transmission Date: 20240716
  Serious: Yes (Hospitalization)
  Sender: FDA-Public Use
  Company Number: 2024A074012

PATIENT
  Age: 69 Year
  Sex: Female
  Weight: 83.4 kg

DRUGS (7)
  1. DAPAGLIFLOZIN [Suspect]
     Active Substance: DAPAGLIFLOZIN
     Indication: Type 2 diabetes mellitus
     Route: 048
     Dates: start: 20240206, end: 20240304
  2. AUGMENTIN [Suspect]
     Active Substance: AMOXICILLIN\CLAVULANATE POTASSIUM
     Indication: Cough
     Dates: start: 20240223, end: 20240229
  3. OZEMPIC [Suspect]
     Active Substance: SEMAGLUTIDE
     Indication: Type 2 diabetes mellitus
     Route: 058
     Dates: start: 20240206, end: 20240206
  4. ESIDREX [Suspect]
     Active Substance: HYDROCHLOROTHIAZIDE
     Indication: Chronic kidney disease
     Route: 048
     Dates: start: 20240215, end: 20240304
  5. COVID-19 VACCINE NOS [Suspect]
     Active Substance: COVID-19 VACCINE NOS
     Indication: COVID-19 immunisation
     Route: 030
     Dates: start: 20240208, end: 20240208
  6. RITUXIMAB [Suspect]
     Active Substance: RITUXIMAB
     Indication: Autoimmune blistering disease
     Route: 030
     Dates: start: 20240210, end: 20240222
  7. SALAZOPYRINE [Suspect]
     Active Substance: SULFASALAZINE
     Indication: Autoimmune blistering disease
     Route: 048
     Dates: start: 20240215, end: 20240301

REACTIONS (3)
  - Dermatitis bullous [Recovering/Resolving]
  - Disease recurrence [Recovering/Resolving]
  - Rash maculo-papular [Recovering/Resolving]

NARRATIVE: CASE EVENT DATE: 20240229
